FAERS Safety Report 8992975 (Version 2)
Quarter: 2013Q1

REPORT INFORMATION
  Report Type: Spontaneous
  Country: TR (occurrence: TR)
  Receive Date: 20130102
  Receipt Date: 20130118
  Transmission Date: 20140127
  Serious: Yes (Life-Threatening)
  Sender: FDA-Public Use
  Company Number: PHHY2012TR121082

PATIENT
  Age: 56 Year
  Sex: Male

DRUGS (1)
  1. SANDOSTATIN LAR [Suspect]
     Indication: ACROMEGALY
     Dosage: 20 MG, ONCE EVERY 28 DAYS
     Dates: start: 2005

REACTIONS (11)
  - Anaphylactic reaction [Unknown]
  - Chest discomfort [Unknown]
  - Sensation of foreign body [Not Recovered/Not Resolved]
  - Flushing [Recovering/Resolving]
  - Hypoxia [Recovering/Resolving]
  - Skin discolouration [Recovering/Resolving]
  - Hyperhidrosis [Recovering/Resolving]
  - Heart rate increased [Recovering/Resolving]
  - Hypertension [Recovering/Resolving]
  - Dyspnoea [Unknown]
  - Cough [Unknown]
